FAERS Safety Report 18404828 (Version 1)
Quarter: 2020Q4

REPORT INFORMATION
  Report Type: Spontaneous
  Country: US (occurrence: US)
  Receive Date: 20201020
  Receipt Date: 20201020
  Transmission Date: 20210114
  Serious: No
  Sender: FDA-Public Use
  Company Number: None

PATIENT
  Age: 39 Year
  Sex: Female
  Weight: 122.7 kg

DRUGS (22)
  1. AZITHROMYCIN ANHYDROUS. [Concomitant]
     Active Substance: AZITHROMYCIN ANHYDROUS
     Dates: start: 20201014, end: 20201014
  2. KETAMINE [Concomitant]
     Active Substance: KETAMINE
     Dates: start: 20201014, end: 20201014
  3. POTASSIUM PHOSPHATE [Concomitant]
     Active Substance: POTASSIUM PHOSPHATE
     Dates: start: 20201014, end: 20201018
  4. DOCUSATE [Concomitant]
     Active Substance: DOCUSATE
     Dates: start: 20201014
  5. LEVOTHYROXINE. [Concomitant]
     Active Substance: LEVOTHYROXINE
     Dates: start: 20201014
  6. ALBUTEROL-IPRATROPIUM [Concomitant]
     Active Substance: ALBUTEROL\IPRATROPIUM
     Dates: start: 20201014
  7. TOCILIZUMAB. [Concomitant]
     Active Substance: TOCILIZUMAB
     Dates: start: 20201014, end: 20201014
  8. LIDOCAINE. [Concomitant]
     Active Substance: LIDOCAINE
     Dates: start: 20201014, end: 20201014
  9. NOREPINEPHRINE. [Concomitant]
     Active Substance: NOREPINEPHRINE
     Dates: start: 20201014, end: 20201018
  10. SENNA [Concomitant]
     Active Substance: SENNA LEAF\SENNOSIDES\SENNOSIDES A AND B
     Dates: start: 20201014
  11. CHLORHEXIDINE [Concomitant]
     Active Substance: CHLORHEXIDINE
     Dates: start: 20201014
  12. ENOXAPARIN [Concomitant]
     Active Substance: ENOXAPARIN
     Dates: start: 20201016
  13. INSULIN ASPART [Concomitant]
     Active Substance: INSULIN ASPART
     Dates: start: 20201014
  14. REMDESIVIR. [Suspect]
     Active Substance: REMDESIVIR
     Indication: COVID-19
     Route: 042
     Dates: start: 20201014, end: 20201018
  15. FENTANYL. [Concomitant]
     Active Substance: FENTANYL
     Dates: start: 20201014
  16. POLYETHYLENE GLYCOL 3350. [Concomitant]
     Active Substance: POLYETHYLENE GLYCOL 3350
     Dates: start: 20201017
  17. PROPOFOL. [Concomitant]
     Active Substance: PROPOFOL
     Dates: start: 20201014
  18. CEFEPIME [Concomitant]
     Active Substance: CEFEPIME HYDROCHLORIDE
     Dates: start: 20201014, end: 20201017
  19. DEXAMETHASONE. [Concomitant]
     Active Substance: DEXAMETHASONE
     Dates: start: 20201013
  20. HEPARIN [Concomitant]
     Active Substance: HEPARIN SODIUM
     Dates: start: 20201014
  21. PANTOPRAZOLE [Concomitant]
     Active Substance: PANTOPRAZOLE
     Dates: start: 20201015
  22. VANCOMYCIN [Concomitant]
     Active Substance: VANCOMYCIN
     Dates: start: 20201014

REACTIONS (2)
  - Aspartate aminotransferase increased [None]
  - Alanine aminotransferase increased [None]

NARRATIVE: CASE EVENT DATE: 20201018
